FAERS Safety Report 17517021 (Version 1)
Quarter: 2020Q1

REPORT INFORMATION
  Report Type: Spontaneous
  Country: US (occurrence: US)
  Receive Date: 20200309
  Receipt Date: 20200309
  Transmission Date: 20200409
  Serious: Yes (Other)
  Sender: FDA-Public Use
  Company Number: US-ASTRAZENECA-2020SE32544

PATIENT
  Age: 554 Month
  Sex: Female

DRUGS (4)
  1. LETROZOLE. [Concomitant]
     Active Substance: LETROZOLE
  2. FASLODEX [Suspect]
     Active Substance: FULVESTRANT
     Route: 030
  3. AFINITOR [Suspect]
     Active Substance: EVEROLIMUS
     Route: 065
  4. IBRANCE [Suspect]
     Active Substance: PALBOCICLIB
     Route: 048

REACTIONS (4)
  - Metastases to bone [Not Recovered/Not Resolved]
  - BRCA2 gene mutation [Unknown]
  - Metastases to liver [Recovering/Resolving]
  - Oestrogen receptor assay positive [Unknown]

NARRATIVE: CASE EVENT DATE: 201708
